FAERS Safety Report 4643366-X (Version None)
Quarter: 2005Q2

REPORT INFORMATION
  Report Type: 
  Country: None (occurrence: None)
  Receive Date: 20050422
  Receipt Date: 20050414
  Transmission Date: 20051028
  Serious: Yes (Other)
  Sender: FDA-Public Use
  Company Number: HQWYE074418APR05

PATIENT
  Age: 44 Year
  Sex: Male
  Weight: 79.45 kg

DRUGS (4)
  1. EFFEXOR XR [Suspect]
     Indication: SUICIDAL IDEATION
     Dosage: ^VARIOUS HIGH DOSES USUALLY 225 MG TO 300 MG A DAY^, ORAL
     Route: 048
     Dates: start: 20010101, end: 20050406
  2. EFFEXOR XR [Suspect]
     Indication: SUICIDAL IDEATION
     Dosage: ^VARIOUS HIGH DOSES USUALLY 225 MG TO 300 MG A DAY^, ORAL
     Route: 048
     Dates: start: 20050407, end: 20050413
  3. ASPIRIN [Concomitant]
  4. IBUPROFEN [Concomitant]

REACTIONS (10)
  - ANXIETY [None]
  - CIRCADIAN RHYTHM SLEEP DISORDER [None]
  - COLD SWEAT [None]
  - CONSTIPATION [None]
  - DIZZINESS [None]
  - DRUG DEPENDENCE [None]
  - DRUG EFFECT DECREASED [None]
  - DYSPEPSIA [None]
  - RECTAL HAEMORRHAGE [None]
  - TREATMENT NONCOMPLIANCE [None]
